FAERS Safety Report 26191193 (Version 2)
Quarter: 2025Q4

REPORT INFORMATION
  Report Type: Spontaneous
  Country: BR (occurrence: BR)
  Receive Date: 20251223
  Receipt Date: 20251229
  Transmission Date: 20260117
  Serious: Yes (Other)
  Sender: MYLAN
  Company Number: BR-MYLANLABS-2025M1108883

PATIENT
  Age: 39 Year
  Sex: Male
  Weight: 145 kg

DRUGS (3)
  1. GEODON [Suspect]
     Active Substance: ZIPRASIDONE HYDROCHLORIDE\ZIPRASIDONE MESYLATE
     Indication: Autism spectrum disorder
     Dosage: 80 MILLIGRAM, BID (ONE CAPSULE TWICE A DAY, IN THE MORNING AND AT NIGHT)
     Route: 061
  2. GEODON [Suspect]
     Active Substance: ZIPRASIDONE HYDROCHLORIDE\ZIPRASIDONE MESYLATE
     Indication: Autism spectrum disorder
     Dosage: 80 MILLIGRAM, BID (TWO CAPSULES TWICE A DAY, IN THE MORNING AND AT NIGHT)
     Route: 061
  3. RIVOTRIL [Concomitant]
     Active Substance: CLONAZEPAM
     Indication: Product used for unknown indication
     Dosage: 2 MILLIGRAM, BID (TWICE A DAY, IN THE MORNING AND AT NIGHT)

REACTIONS (7)
  - Erysipelas [Recovered/Resolved with Sequelae]
  - Thrombosis [Recovered/Resolved]
  - Lymphoedema [Not Recovered/Not Resolved]
  - Malaise [Unknown]
  - Therapeutic response unexpected [Not Recovered/Not Resolved]
  - Product availability issue [Not Recovered/Not Resolved]
  - Off label use [Not Recovered/Not Resolved]

NARRATIVE: CASE EVENT DATE: 20250501
